FAERS Safety Report 18618248 (Version 1)
Quarter: 2020Q4

REPORT INFORMATION
  Report Type: Spontaneous
  Country: US (occurrence: US)
  Receive Date: 20201215
  Receipt Date: 20201215
  Transmission Date: 20210114
  Serious: Yes (Other)
  Sender: FDA-Public Use
  Company Number: None

PATIENT
  Age: 40 Year
  Sex: Female

DRUGS (2)
  1. VIVITROL [Concomitant]
     Active Substance: NALTREXONE
     Dates: start: 20201118, end: 20201215
  2. VIVITROL [Suspect]
     Active Substance: NALTREXONE
     Indication: ALCOHOLISM
     Dosage: ?          OTHER FREQUENCY:ONCE MONTHLY;?
     Route: 030
     Dates: start: 20201118, end: 20201215

REACTIONS (4)
  - Injection site nodule [None]
  - Abscess [None]
  - Injection site irritation [None]
  - Incorrect route of product administration [None]

NARRATIVE: CASE EVENT DATE: 20201201
